FAERS Safety Report 16735713 (Version 1)
Quarter: 2019Q3

REPORT INFORMATION
  Report Type: Spontaneous
  Country: US (occurrence: US)
  Receive Date: 20190823
  Receipt Date: 20190823
  Transmission Date: 20191005
  Serious: No
  Sender: FDA-Public Use
  Company Number: US-PFIZER INC-2019359256

PATIENT
  Age: 74 Year
  Sex: Female
  Weight: 81.65 kg

DRUGS (1)
  1. LYRICA [Suspect]
     Active Substance: PREGABALIN
     Indication: NEUROPATHY PERIPHERAL
     Dosage: 100 MG, 1X/DAY (BEDTIME)
     Route: 048

REACTIONS (4)
  - Bruxism [Recovering/Resolving]
  - Insomnia [Recovering/Resolving]
  - Drug hypersensitivity [Recovering/Resolving]
  - Expired product administered [Unknown]
